FAERS Safety Report 6563972-5 (Version None)
Quarter: 2010Q1

REPORT INFORMATION
  Report Type: 
  Country: None (occurrence: None)
  Receive Date: 20100131
  Receipt Date: 20100120
  Transmission Date: 20100710
  Serious: Yes (Hospitalization)
  Sender: FDA-Public Use
  Company Number: DE-JNJFOC-20100108049

PATIENT
  Age: 2 Year
  Sex: Male
  Weight: 13.5 kg

DRUGS (2)
  1. IBUPROFEN [Suspect]
     Route: 048
  2. IBUPROFEN [Suspect]
     Indication: DRUG USE FOR UNKNOWN INDICATION
     Route: 048

REACTIONS (4)
  - ABASIA [None]
  - ACCIDENTAL OVERDOSE [None]
  - FALL [None]
  - FATIGUE [None]
